FAERS Safety Report 12702836 (Version 1)
Quarter: 2016Q3

REPORT INFORMATION
  Report Type: Spontaneous
  Country: CA (occurrence: CA)
  Receive Date: 20160831
  Receipt Date: 20160831
  Transmission Date: 20161109
  Serious: Yes (Death)
  Sender: FDA-Public Use
  Company Number: CA-ROCHE-1822929

PATIENT
  Age: 82 Year
  Sex: Male

DRUGS (8)
  1. IRBESARTAN. [Concomitant]
     Active Substance: IRBESARTAN
     Route: 065
  2. GLUCOPHAGE [Concomitant]
     Active Substance: METFORMIN HYDROCHLORIDE
     Route: 065
  3. LIPITOR [Concomitant]
     Active Substance: ATORVASTATIN CALCIUM
     Route: 065
  4. NORVASC [Concomitant]
     Active Substance: AMLODIPINE BESYLATE
     Route: 065
  5. ACETAMINOPHEN. [Concomitant]
     Active Substance: ACETAMINOPHEN
     Route: 065
  6. HYDROCHLOROTHIAZIDE. [Concomitant]
     Active Substance: HYDROCHLOROTHIAZIDE
     Route: 065
  7. ASPIRIN. [Concomitant]
     Active Substance: ASPIRIN
     Route: 065
  8. ESBRIET [Suspect]
     Active Substance: PIRFENIDONE
     Indication: PULMONARY FIBROSIS
     Route: 065

REACTIONS (7)
  - Inappropriate schedule of drug administration [Fatal]
  - Blood pressure decreased [Fatal]
  - Fatigue [Fatal]
  - Cardiac arrest [Fatal]
  - Feeling hot [Fatal]
  - Drug administration error [Fatal]
  - Erythema [Fatal]
